FAERS Safety Report 5914543-2 (Version None)
Quarter: 2008Q4

REPORT INFORMATION
  Report Type: 
  Country: None (occurrence: None)
  Receive Date: 20081008
  Receipt Date: 20081003
  Transmission Date: 20090506
  Serious: Yes (Death)
  Sender: FDA-Public Use
  Company Number: 08-ADE-SU-0007-DOR

PATIENT
  Age: 60 Year
  Sex: Female

DRUGS (8)
  1. DORAL [Suspect]
     Dosage: 15 MG PO
     Route: 048
  2. FLUNITRAZEPAM [Concomitant]
  3. LONASEN (BLONANSERIN) [Concomitant]
  4. DIOVAN [Concomitant]
  5. ABILIFY [Concomitant]
  6. ENALAPRIL MALEATE [Concomitant]
  7. U PAN (LORAZEPAM) [Concomitant]
  8. NATEGLINIDE [Concomitant]

REACTIONS (1)
  - MYOCARDIAL INFARCTION [None]
